FAERS Safety Report 25538408 (Version 1)
Quarter: 2025Q3

REPORT INFORMATION
  Report Type: Spontaneous
  Country: JP (occurrence: JP)
  Receive Date: 20250710
  Receipt Date: 20250710
  Transmission Date: 20251021
  Serious: Yes (Other)
  Sender: MYLAN
  Company Number: JP-MYLANLABS-2025M1057573

PATIENT
  Age: 44 Year
  Sex: Female

DRUGS (8)
  1. TACROLIMUS [Suspect]
     Active Substance: TACROLIMUS
     Indication: Graft versus host disease
  2. TACROLIMUS [Suspect]
     Active Substance: TACROLIMUS
     Route: 065
  3. TACROLIMUS [Suspect]
     Active Substance: TACROLIMUS
     Route: 065
  4. TACROLIMUS [Suspect]
     Active Substance: TACROLIMUS
  5. METHOTREXATE [Suspect]
     Active Substance: METHOTREXATE
     Indication: Graft versus host disease
  6. METHOTREXATE [Suspect]
     Active Substance: METHOTREXATE
     Route: 065
  7. METHOTREXATE [Suspect]
     Active Substance: METHOTREXATE
     Route: 065
  8. METHOTREXATE [Suspect]
     Active Substance: METHOTREXATE

REACTIONS (1)
  - Drug ineffective [Unknown]
